FAERS Safety Report 25510284 (Version 1)
Quarter: 2025Q3

REPORT INFORMATION
  Report Type: Spontaneous
  Country: GB (occurrence: GB)
  Receive Date: 20250703
  Receipt Date: 20250703
  Transmission Date: 20251020
  Serious: Yes (Other)
  Sender: ESPERION THERAPEUTICS
  Company Number: GB-MHRA-TPP30223699C8530471YC1750952651285

PATIENT
  Age: 64 Year
  Sex: Female
  Weight: 70 kg

DRUGS (4)
  1. BEMPEDOIC ACID\EZETIMIBE [Suspect]
     Active Substance: BEMPEDOIC ACID\EZETIMIBE
     Indication: Ill-defined disorder
     Dosage: 1 DOSAGE FORM, QD (TAKE ONE DAILY- TO REPLACE EZETIMIBE ALONE)
     Route: 065
     Dates: start: 20241030
  2. CALCIUM CARBONATE [Concomitant]
     Active Substance: CALCIUM CARBONATE
     Indication: Ill-defined disorder
     Dosage: 1 DOSAGE FORM, QD (TAKE ONE DAILY)
     Route: 065
     Dates: start: 20240723, end: 20250402
  3. VAGIFEM [Concomitant]
     Active Substance: ESTRADIOL
     Indication: Urinary tract disorder
     Dosage: 1 DOSAGE FORM, ONCE EVERY 2 WK (1 PESSARY TWICE A WEEK FOR VAGINAL/URINARY SYMPT.)
     Route: 065
     Dates: start: 20240723
  4. CALCI D [Concomitant]
     Indication: Ill-defined disorder
     Route: 065
     Dates: start: 20250409

REACTIONS (4)
  - Lymphadenopathy [Unknown]
  - Oesophageal pain [Recovered/Resolved]
  - Oropharyngeal pain [Unknown]
  - Pharyngeal swelling [Unknown]
